FAERS Safety Report 9452616 (Version 1)
Quarter: 2013Q3

REPORT INFORMATION
  Report Type: Spontaneous
  Country: US (occurrence: None)
  Receive Date: 20130808
  Receipt Date: 20130808
  Transmission Date: 20140515
  Serious: No
  Sender: FDA-Public Use
  Company Number: None

PATIENT
  Age: 48 Year
  Sex: Male
  Weight: 93.53 kg

DRUGS (6)
  1. TEMOZOLOMIDE [Suspect]
  2. DOCUSATE [Concomitant]
  3. IBUPROFEN [Concomitant]
  4. LEVETIRACETAM [Concomitant]
  5. LORAZEPAM [Concomitant]
  6. PAXIL CR [Concomitant]

REACTIONS (1)
  - Neutrophil count decreased [None]
